FAERS Safety Report 20189795 (Version 1)
Quarter: 2021Q4

REPORT INFORMATION
  Report Type: Spontaneous
  Country: US (occurrence: US)
  Receive Date: 20211215
  Receipt Date: 20211215
  Transmission Date: 20220303
  Serious: No
  Sender: FDA-Public Use
  Company Number: US-SK LIFE SCIENCE, INC-SKPVG-2021-001027

PATIENT

DRUGS (1)
  1. XCOPRI [Suspect]
     Active Substance: CENOBAMATE
     Indication: Seizure
     Dosage: 200 MILLIGRAM, QD IN THE MORNING (STOP DATE: 18-OCT-2021 00:00)
     Route: 048

REACTIONS (1)
  - Product availability issue [Recovered/Resolved]

NARRATIVE: CASE EVENT DATE: 20211019
